FAERS Safety Report 4890365-9 (Version None)
Quarter: 2005Q4

REPORT INFORMATION
  Report Type: 
  Country: None (occurrence: None)
  Receive Date: 20051216
  Receipt Date: 20051010
  Transmission Date: 20060501
  Serious: No
  Sender: FDA-Public Use
  Company Number: USA0510110456

PATIENT
  Age: 52 Year
  Sex: Male

DRUGS (1)
  1. CIALIS [Suspect]
     Indication: ERECTILE DYSFUNCTION
     Dosage: 20 MG
     Dates: start: 20051007, end: 20051009

REACTIONS (7)
  - EAR CONGESTION [None]
  - HEADACHE [None]
  - INFLUENZA LIKE ILLNESS [None]
  - NASAL CONGESTION [None]
  - NAUSEA [None]
  - SHOULDER PAIN [None]
  - SLEEP DISORDER [None]
